FAERS Safety Report 5398669-0 (Version None)
Quarter: 2007Q3

REPORT INFORMATION
  Report Type: 
  Country: None (occurrence: None)
  Receive Date: 20070726
  Receipt Date: 20070410
  Transmission Date: 20080115
  Serious: No
  Sender: FDA-Public Use
  Company Number: US-AMGEN-KDL204314

PATIENT
  Sex: Female
  Weight: 83.5 kg

DRUGS (10)
  1. PROCRIT [Suspect]
     Indication: ANAEMIA
     Dates: start: 20061211
  2. TOPAMAX [Concomitant]
  3. TIZANIDINE HCL [Concomitant]
  4. SKELAXIN [Concomitant]
  5. LEVOTHYROXINE SODIUM [Concomitant]
  6. BACLOFEN [Concomitant]
  7. KEPPRA [Concomitant]
  8. WELLBUTRIN [Concomitant]
  9. PROVIGIL [Concomitant]
  10. ASCORBIC ACID [Concomitant]

REACTIONS (5)
  - ARTHRALGIA [None]
  - JOINT SWELLING [None]
  - OEDEMA PERIPHERAL [None]
  - PAIN IN EXTREMITY [None]
  - PITTING OEDEMA [None]
